FAERS Safety Report 5776499-5 (Version None)
Quarter: 2008Q2

REPORT INFORMATION
  Report Type: 
  Country: None (occurrence: None)
  Receive Date: 20080616
  Receipt Date: 20080520
  Transmission Date: 20081010
  Serious: Yes (Hospitalization)
  Sender: FDA-Public Use
  Company Number: 8033017

PATIENT
  Age: 74 Year
  Sex: Male

DRUGS (4)
  1. NIFEDIPINE [Suspect]
     Dosage: 60 MG 1/D
  2. EPREX [Suspect]
     Indication: ANAEMIA
     Dosage: 4000 IU 2/W SC
     Route: 058
     Dates: start: 20000829, end: 20010606
  3. EPREX [Suspect]
     Indication: ANAEMIA
     Dosage: 4000 IU 1/W SC
     Route: 058
     Dates: start: 20010607, end: 20010712
  4. ALFACALCIDOL [Concomitant]

REACTIONS (1)
  - APLASIA PURE RED CELL [None]
